FAERS Safety Report 7692344-5 (Version None)
Quarter: 2011Q3

REPORT INFORMATION
  Report Type: 
  Country: None (occurrence: None)
  Receive Date: 20110818
  Receipt Date: 20110810
  Transmission Date: 20111222
  Serious: Yes (Other)
  Sender: FDA-Public Use
  Company Number: US-BAYER-2011-071709

PATIENT
  Age: 18 Year
  Sex: Female

DRUGS (1)
  1. MIRENA [Suspect]
     Indication: CONTRACEPTION
     Dosage: UNK
     Route: 015
     Dates: start: 20100823

REACTIONS (6)
  - DEVICE DISLOCATION [None]
  - PELVIC PAIN [None]
  - PAIN [None]
  - METRORRHAGIA [None]
  - ABDOMINAL PAIN [None]
  - VAGINAL HAEMORRHAGE [None]
